FAERS Safety Report 6847823-7 (Version None)
Quarter: 2010Q3

REPORT INFORMATION
  Report Type: 
  Country: None (occurrence: None)
  Receive Date: 20100716
  Receipt Date: 20100706
  Transmission Date: 20110219
  Serious: Yes (Other)
  Sender: FDA-Public Use
  Company Number: US-BAYER-200934715NA

PATIENT
  Age: 43 Year
  Sex: Male

DRUGS (5)
  1. AVELOX [Suspect]
     Indication: INFECTION
  2. CIPROFLOXACIN HCL [Suspect]
     Indication: PRODUCT USED FOR UNKNOWN INDICATION
  3. DECADRON [Concomitant]
     Dates: start: 20061115
  4. CLARITIN [Concomitant]
     Dosage: TOTAL DAILY DOSE: 10 MG  UNIT DOSE: 10 MG
     Route: 048
  5. ADVIL LIQUI-GELS [Concomitant]
     Dosage: 2 TABLETS
     Route: 048

REACTIONS (11)
  - ARTHRALGIA [None]
  - BURSITIS [None]
  - CONTUSION [None]
  - EXOSTOSIS [None]
  - JOINT RANGE OF MOTION DECREASED [None]
  - JOINT SWELLING [None]
  - MUSCULOSKELETAL PAIN [None]
  - SKIN WARM [None]
  - TENDERNESS [None]
  - TENDON RUPTURE [None]
  - TENDONITIS [None]
